FAERS Safety Report 12208303 (Version 1)
Quarter: 2016Q1

REPORT INFORMATION
  Report Type: Spontaneous
  Country: CH (occurrence: FR)
  Receive Date: 20160324
  Receipt Date: 20160324
  Transmission Date: 20160526
  Serious: Yes (Other)
  Sender: FDA-Public Use
  Company Number: CH-LPDUSPRD-20130763

PATIENT
  Age: 70 Year
  Sex: Female
  Weight: 72 kg

DRUGS (9)
  1. FERINJECT [Suspect]
     Active Substance: FERRIC CARBOXYMALTOSE
     Dosage: 500 MG, FOR 5 DAYS/WK, X 2 WKS
     Route: 041
     Dates: start: 20130803
  2. LEXOMIL [Concomitant]
     Active Substance: BROMAZEPAM
     Dosage: UNKNOWN
     Route: 065
  3. FORADIL [Concomitant]
     Active Substance: FORMOTEROL FUMARATE
     Dosage: UNK
     Route: 065
  4. NASONEX [Concomitant]
     Active Substance: MOMETASONE FUROATE
     Dosage: UNKNOWN
     Route: 065
  5. INEXIUM [Concomitant]
     Active Substance: ESOMEPRAZOLE
     Dosage: UNKNOWN
     Route: 065
  6. PULMICORT TURBUHALER [Concomitant]
     Active Substance: BUDESONIDE
     Dosage: UNKNOWN
     Route: 065
  7. CETIRIZINE [Concomitant]
     Active Substance: CETIRIZINE HYDROCHLORIDE
     Dosage: UNKNOWN
     Route: 065
  8. LAMALINE [Concomitant]
     Active Substance: ACETAMINOPHEN\CAFFEINE\OPIUM
     Dosage: UNKNOWN DOSE, 3 IN 1 D
     Route: 065
  9. FERINJECT [Suspect]
     Active Substance: FERRIC CARBOXYMALTOSE
     Dosage: 1000 MG, FOR 10 DAYS
     Route: 041
     Dates: start: 20130820, end: 20130830

REACTIONS (20)
  - Malaise [Recovered/Resolved with Sequelae]
  - Weight decreased [Unknown]
  - Gait disturbance [Recovered/Resolved with Sequelae]
  - Paralysis [Recovered/Resolved with Sequelae]
  - Lung disorder [Recovered/Resolved with Sequelae]
  - Fear of death [Recovered/Resolved with Sequelae]
  - Serum ferritin increased [Not Recovered/Not Resolved]
  - Bedridden [Recovered/Resolved with Sequelae]
  - Pain in extremity [Recovered/Resolved with Sequelae]
  - Back pain [Recovered/Resolved with Sequelae]
  - Drug prescribing error [Unknown]
  - Movement disorder [Recovered/Resolved with Sequelae]
  - Skin discolouration [Recovered/Resolved with Sequelae]
  - Overdose [Unknown]
  - Arthralgia [Recovering/Resolving]
  - Asthenia [Recovering/Resolving]
  - Oedema peripheral [Recovered/Resolved with Sequelae]
  - Eating disorder [Unknown]
  - Blood iron increased [Unknown]
  - Crying [Recovered/Resolved with Sequelae]

NARRATIVE: CASE EVENT DATE: 201308
